FAERS Safety Report 11048163 (Version 2)
Quarter: 2015Q4

REPORT INFORMATION
  Report Type: Spontaneous
  Country: FR (occurrence: FR)
  Receive Date: 20150420
  Receipt Date: 20151027
  Transmission Date: 20160304
  Serious: Yes (Hospitalization)
  Sender: FDA-Public Use
  Company Number: FR-SA-2015SA048329

PATIENT
  Age: 73 Year
  Sex: Female

DRUGS (18)
  1. NORDAZ [Concomitant]
     Active Substance: NORDAZEPAM
  2. STILNOX [Concomitant]
     Active Substance: ZOLPIDEM TARTRATE
  3. LASILIX [Suspect]
     Active Substance: FUROSEMIDE
     Route: 042
     Dates: start: 20150319
  4. MIDAZOLAM [Suspect]
     Active Substance: MIDAZOLAM\MIDAZOLAM HYDROCHLORIDE
     Route: 042
     Dates: start: 20150317, end: 20150323
  5. METFORMIN [Concomitant]
     Active Substance: METFORMIN HYDROCHLORIDE
  6. NOVONORM [Concomitant]
     Active Substance: REPAGLINIDE
  7. EFFEXOR [Concomitant]
     Active Substance: VENLAFAXINE HYDROCHLORIDE
  8. BYETTA [Concomitant]
     Active Substance: EXENATIDE
     Dates: start: 201507
  9. PROPOFOL. [Suspect]
     Active Substance: PROPOFOL
     Route: 042
     Dates: start: 20150317, end: 20150323
  10. BYETTA [Concomitant]
     Active Substance: EXENATIDE
  11. EFFEXOR [Concomitant]
     Active Substance: VENLAFAXINE HYDROCHLORIDE
     Dates: start: 20150326
  12. AMOXICILLIN/CLAVULANIC ACID [Suspect]
     Active Substance: AMOXICILLIN\CLAVULANIC ACID
     Route: 042
     Dates: start: 20150319
  13. OMEPRAZOLE. [Concomitant]
     Active Substance: OMEPRAZOLE
     Dosage: STRENGTH: 40MG
     Route: 042
     Dates: start: 20150317
  14. SUFENTANIL MYLAN [Suspect]
     Active Substance: SUFENTANIL
     Route: 042
     Dates: start: 20150317, end: 20150323
  15. LOVENOX [Concomitant]
     Active Substance: ENOXAPARIN SODIUM
     Route: 058
     Dates: start: 20150317
  16. INSULIN [Concomitant]
     Active Substance: INSULIN NOS
     Route: 058
     Dates: start: 20150317
  17. HYDROXOCOBALAMIN [Suspect]
     Active Substance: HYDROXOCOBALAMIN
     Route: 042
     Dates: start: 20150317, end: 20150317
  18. LEVOPHED [Concomitant]
     Active Substance: NOREPINEPHRINE BITARTRATE
     Dates: end: 20150319

REACTIONS (1)
  - Acute kidney injury [Recovered/Resolved]

NARRATIVE: CASE EVENT DATE: 20150320
